FAERS Safety Report 14603014 (Version 3)
Quarter: 2018Q1

REPORT INFORMATION
  Report Type: Report from Study
  Country: None (occurrence: NL)
  Receive Date: 20180306
  Receipt Date: 20180319
  Transmission Date: 20180509
  Serious: Yes (Hospitalization)
  Sender: FDA-Public Use
  Company Number: NL-ABBVIE-18K-114-2274894-00

PATIENT
  Sex: Male
  Weight: 80 kg

DRUGS (3)
  1. DUODOPA [Suspect]
     Active Substance: CARBIDOPA\LEVODOPA
     Indication: PARKINSON^S DISEASE
     Dosage: MD 5, CD 3.4, ED 2, CND 3.4
     Route: 050
     Dates: start: 20121228
  2. MOVICOLON [Concomitant]
     Active Substance: POLYETHYLENE GLYCOL 3350\POTASSIUM CHLORIDE\SODIUM BICARBONATE\SODIUM CHLORIDE
     Indication: ABNORMAL FAECES
  3. LACTULOSE. [Concomitant]
     Active Substance: LACTULOSE
     Indication: ABNORMAL FAECES

REACTIONS (5)
  - Dementia [Unknown]
  - Hallucination, visual [Unknown]
  - Fall [Unknown]
  - Femur fracture [Not Recovered/Not Resolved]
  - Postoperative delirium [Unknown]
